FAERS Safety Report 4624382-0 (Version None)
Quarter: 2005Q1

REPORT INFORMATION
  Report Type: 
  Country: None (occurrence: None)
  Receive Date: 20050107
  Receipt Date: 20041027
  Transmission Date: 20050727
  Serious: No
  Sender: FDA-Public Use
  Company Number: 235377K04USA

PATIENT
  Age: 44 Year
  Sex: Female

DRUGS (2)
  1. REBIF [Suspect]
     Indication: MULTIPLE SCLEROSIS
     Dosage: 22 MCG,
     Dates: start: 20041012
  2. STEROIDS (CORTICOSTEROIDS NOS) [Concomitant]

REACTIONS (4)
  - ANXIETY [None]
  - INJECTION SITE ERYTHEMA [None]
  - MYALGIA [None]
  - PYREXIA [None]
